FAERS Safety Report 8452139-1 (Version None)
Quarter: 2012Q2

REPORT INFORMATION
  Report Type: 
  Country: None (occurrence: None)
  Receive Date: 20120620
  Receipt Date: 20120613
  Transmission Date: 20120825
  Serious: Yes (Other)
  Sender: FDA-Public Use
  Company Number: US-GLAXOSMITHKLINE-A0981716A

PATIENT
  Age: 76 Year
  Sex: Male

DRUGS (11)
  1. FUROSEMIDE [Concomitant]
  2. FISH OIL [Concomitant]
  3. ADVAIR DISKUS 100/50 [Suspect]
     Indication: CHRONIC OBSTRUCTIVE PULMONARY DISEASE
     Route: 055
     Dates: start: 20120202
  4. ASPIRIN [Concomitant]
  5. ISOSORBID MONONITRATE [Concomitant]
  6. MULTI-VITAMIN [Concomitant]
  7. SPIRIVA [Concomitant]
  8. ATORVASTATIN CALCIUM [Concomitant]
  9. CARVEDILOL [Concomitant]
  10. LIPITOR [Concomitant]
  11. POTASSIUM CHLORIDE [Concomitant]

REACTIONS (6)
  - FATIGUE [None]
  - HEADACHE [None]
  - CANDIDIASIS [None]
  - ASTHENIA [None]
  - DYSPHONIA [None]
  - PNEUMONIA [None]
